FAERS Safety Report 7021679-4 (Version None)
Quarter: 2010Q3

REPORT INFORMATION
  Report Type: 
  Country: None (occurrence: None)
  Receive Date: 20100928
  Receipt Date: 20100915
  Transmission Date: 20110219
  Serious: Yes (Hospitalization)
  Sender: FDA-Public Use
  Company Number: WAES 1003USA00528

PATIENT
  Age: 65 Year
  Sex: Female

DRUGS (11)
  1. CAP VORINOSTAT [Suspect]
     Indication: MULTIPLE MYELOMA
     Dosage: 400 MG/UNK; PO, 400 MG/UNK; PO, 400 MG/UNK; PO, 300 MG/DAILY; PO
     Route: 048
     Dates: start: 20100222, end: 20100305
  2. CAP VORINOSTAT [Suspect]
     Indication: MULTIPLE MYELOMA
     Dosage: 400 MG/UNK; PO, 400 MG/UNK; PO, 400 MG/UNK; PO, 300 MG/DAILY; PO
     Route: 048
     Dates: start: 20100315, end: 20100410
  3. CAP VORINOSTAT [Suspect]
     Indication: MULTIPLE MYELOMA
     Dosage: 400 MG/UNK; PO, 400 MG/UNK; PO, 400 MG/UNK; PO, 300 MG/DAILY; PO
     Route: 048
     Dates: start: 20100201
  4. CAP VORINOSTAT [Suspect]
     Indication: MULTIPLE MYELOMA
     Dosage: 400 MG/UNK; PO, 400 MG/UNK; PO, 400 MG/UNK; PO, 300 MG/DAILY; PO
     Route: 048
     Dates: start: 20100426
  5. BORTEZOMIB [Suspect]
     Indication: MULTIPLE MYELOMA
     Dosage: 1.3 MG/M[2]/UNK; IV, 2.3 MG/UNK; IV, 1 MG/M[2]/UNK; IV
     Route: 042
     Dates: start: 20100222, end: 20100409
  6. BORTEZOMIB [Suspect]
     Indication: MULTIPLE MYELOMA
     Dosage: 1.3 MG/M[2]/UNK; IV, 2.3 MG/UNK; IV, 1 MG/M[2]/UNK; IV
     Route: 042
     Dates: start: 20100201
  7. BORTEZOMIB [Suspect]
     Indication: MULTIPLE MYELOMA
     Dosage: 1.3 MG/M[2]/UNK; IV, 2.3 MG/UNK; IV, 1 MG/M[2]/UNK; IV
     Route: 042
     Dates: start: 20100426
  8. ACETYLCYSTEINE [Concomitant]
  9. ACIC [Concomitant]
  10. NOVALGIN [Concomitant]
  11. PANTOPRAZOLE SODIUM [Concomitant]

REACTIONS (30)
  - ALANINE AMINOTRANSFERASE INCREASED [None]
  - BLOOD CALCIUM DECREASED [None]
  - BLOOD CREATINE PHOSPHOKINASE INCREASED [None]
  - BLOOD CREATINE PHOSPHOKINASE MB INCREASED [None]
  - BLOOD GLUCOSE INCREASED [None]
  - BLOOD LACTATE DEHYDROGENASE INCREASED [None]
  - BLOOD SODIUM DECREASED [None]
  - BLOOD URINE PRESENT [None]
  - BUNDLE BRANCH BLOCK RIGHT [None]
  - CONJUNCTIVITIS [None]
  - COUGH [None]
  - DIARRHOEA [None]
  - FAECES DISCOLOURED [None]
  - GAMMA-GLUTAMYLTRANSFERASE INCREASED [None]
  - GENERAL PHYSICAL HEALTH DETERIORATION [None]
  - HAEMATOCRIT DECREASED [None]
  - HAEMOGLOBIN DECREASED [None]
  - NUTRITIONAL CONDITION ABNORMAL [None]
  - OEDEMA PERIPHERAL [None]
  - PLATELET COUNT DECREASED [None]
  - PROTHROMBIN TIME PROLONGED [None]
  - PYREXIA [None]
  - QRS AXIS ABNORMAL [None]
  - RED BLOOD CELL COUNT DECREASED [None]
  - SINUSITIS [None]
  - TACHYCARDIA [None]
  - TACHYPNOEA [None]
  - THROMBOSIS [None]
  - UPPER RESPIRATORY TRACT INFECTION [None]
  - WHITE BLOOD CELL COUNT DECREASED [None]
